FAERS Safety Report 6495017-X (Version None)
Quarter: 2009Q4

REPORT INFORMATION
  Report Type: 
  Country: None (occurrence: None)
  Receive Date: 20091214
  Receipt Date: 20090421
  Transmission Date: 20100525
  Serious: No
  Sender: FDA-Public Use
  Company Number: US-BRISTOL-MYERS SQUIBB COMPANY-14595771

PATIENT
  Age: 61 Year
  Sex: Female
  Weight: 76 kg

DRUGS (9)
  1. EMSAM [Suspect]
     Indication: DEPRESSION
     Dosage: EMSAM 9MG/24HOURS PATCH FOR APPROXIMATELY 2 TO 2.5 MONTHS INITIATED WITH EMSAM 6MG/24HOURS PATCH.
     Route: 062
     Dates: start: 20090101
  2. ABILIFY [Suspect]
     Indication: DEPRESSION
     Dates: start: 20080101
  3. GABAPENTIN [Concomitant]
  4. TRIAMTERENE [Concomitant]
  5. LISINOPRIL [Concomitant]
     Dosage: (FOR YEARS, NO PROBLEMS)
  6. LOVAZA [Concomitant]
  7. VITAMIN B-12 [Concomitant]
     Route: 060
  8. MULTI-VITAMIN [Concomitant]
     Dosage: FRUIT PLUS MULTIVITAMIN
  9. ASPIRIN [Concomitant]

REACTIONS (2)
  - INCREASED APPETITE [None]
  - WEIGHT INCREASED [None]
